FAERS Safety Report 8545432-5 (Version None)
Quarter: 2012Q3

REPORT INFORMATION
  Report Type: 
  Country: None (occurrence: None)
  Receive Date: 20120727
  Receipt Date: 20120209
  Transmission Date: 20120928
  Serious: No
  Sender: FDA-Public Use
  Company Number: US-ASTRAZENECA-2011SE66944

PATIENT
  Age: 48 Year
  Sex: Male
  Weight: 95.3 kg

DRUGS (5)
  1. PROZAC [Concomitant]
     Indication: BIPOLAR I DISORDER
  2. XANAX [Concomitant]
     Indication: ANXIETY
  3. SEROQUEL XR [Suspect]
     Indication: BIPOLAR I DISORDER
     Dosage: 2X50 MG IN THE MORNING AND 150 MG AT NIGHT
     Route: 048
     Dates: start: 20090101
  4. XANAX [Concomitant]
     Indication: PANIC DISORDER
  5. AMBIEN [Concomitant]
     Indication: SLEEP DISORDER

REACTIONS (5)
  - BLEPHAROSPASM [None]
  - MEMORY IMPAIRMENT [None]
  - AMNESIA [None]
  - DRUG WITHDRAWAL SYNDROME [None]
  - DRUG DOSE OMISSION [None]
